FAERS Safety Report 8161292-9 (Version None)
Quarter: 2012Q1

REPORT INFORMATION
  Report Type: 
  Country: None (occurrence: None)
  Receive Date: 20120224
  Receipt Date: 20120215
  Transmission Date: 20120608
  Serious: Yes (Other)
  Sender: FDA-Public Use
  Company Number: CA-JNJFOC-20120207131

PATIENT
  Sex: Female
  Weight: 106 kg

DRUGS (10)
  1. ALPRAZOLAM [Concomitant]
     Route: 065
  2. WELLBUTRIN [Concomitant]
     Route: 065
  3. REMICADE [Suspect]
     Route: 042
     Dates: start: 20111109
  4. BUSPIRONE HCL [Concomitant]
     Route: 065
  5. METHOTREXATE [Concomitant]
     Route: 065
  6. PANTOPRAZOLE [Concomitant]
     Route: 065
  7. AMITRIPTYLINE HCL [Concomitant]
     Route: 065
  8. SIMVASTATIN [Concomitant]
     Route: 065
  9. REMICADE [Suspect]
     Indication: PSORIASIS
     Route: 042
     Dates: start: 20110926
  10. SYNTHROID [Concomitant]
     Route: 065

REACTIONS (1)
  - HERPES ZOSTER [None]
